FAERS Safety Report 4377708-X (Version None)
Quarter: 2004Q2

REPORT INFORMATION
  Report Type: 
  Country: None (occurrence: None)
  Receive Date: 20040615
  Receipt Date: 20040604
  Transmission Date: 20050107
  Serious: Yes (Hospitalization)
  Sender: FDA-Public Use
  Company Number: US-BRISTOL-MYERS SQUIBB COMPANY-12605069

PATIENT
  Age: 55 Year
  Sex: Female

DRUGS (15)
  1. CARBOPLATIN [Suspect]
     Indication: OVARIAN CANCER
     Route: 042
     Dates: start: 20040123, end: 20040123
  2. PACLITAXEL [Suspect]
     Indication: OVARIAN CANCER
     Route: 042
     Dates: start: 20040123, end: 20040123
  3. DECADRON [Concomitant]
     Indication: PREMEDICATION
     Dates: start: 20031204, end: 20031205
  4. BENADRYL [Concomitant]
     Indication: PREMEDICATION
     Dates: start: 20031205, end: 20031205
  5. ZANTAC [Concomitant]
     Indication: PREMEDICATION
     Dates: start: 20031205, end: 20031205
  6. ATIVAN [Concomitant]
     Dates: start: 20031205, end: 20031205
  7. KYTRIL [Concomitant]
     Dates: start: 20031205, end: 20031205
  8. PROZAC [Concomitant]
     Dates: start: 20030920
  9. TYLENOL [Concomitant]
  10. CALCIUM [Concomitant]
     Dates: start: 20030201
  11. MULTIVITAMIN [Concomitant]
     Dates: start: 20030501
  12. MAGNESIUM [Concomitant]
  13. ANAPROX [Concomitant]
     Dates: start: 20031025
  14. COMPAZINE [Concomitant]
     Dates: start: 20031025
  15. ARANESP [Concomitant]
     Dates: start: 20040123

REACTIONS (3)
  - ABDOMINAL PAIN [None]
  - NAUSEA [None]
  - VOMITING [None]
